FAERS Safety Report 13418282 (Version 1)
Quarter: 2017Q2

REPORT INFORMATION
  Report Type: Report from Study
  Country: US (occurrence: US)
  Receive Date: 20170407
  Receipt Date: 20170407
  Transmission Date: 20170830
  Serious: No
  Sender: FDA-Public Use
  Company Number: US-AMGEN-USASL2017049803

PATIENT
  Age: 66 Year
  Sex: Female

DRUGS (1)
  1. ENBREL [Suspect]
     Active Substance: ETANERCEPT
     Indication: ANKYLOSING SPONDYLITIS
     Dosage: 50 MG, QWK
     Route: 065
     Dates: start: 2016

REACTIONS (11)
  - Pain [Unknown]
  - Feeling hot [Unknown]
  - Erythema [Unknown]
  - Abdominal pain upper [Unknown]
  - Drug dose omission [Unknown]
  - Chills [Unknown]
  - Malaise [Unknown]
  - Hyperhidrosis [Unknown]
  - Viral upper respiratory tract infection [Recovering/Resolving]
  - Dizziness [Unknown]
  - Hypophagia [Unknown]

NARRATIVE: CASE EVENT DATE: 2016
